FAERS Safety Report 5471112-9 (Version None)
Quarter: 2007Q3

REPORT INFORMATION
  Report Type: 
  Country: None (occurrence: None)
  Receive Date: 20070928
  Receipt Date: 20070924
  Transmission Date: 20080115
  Serious: Yes (Death)
  Sender: FDA-Public Use
  Company Number: US-JNJFOC-20061002122

PATIENT
  Sex: Female
  Weight: 58.97 kg

DRUGS (5)
  1. DURAGESIC-100 [Suspect]
     Indication: PAIN
  2. CARISOPRODOL [Interacting]
     Indication: MUSCLE SPASMS
  3. DIAZEPAM [Interacting]
     Indication: DRUG USE FOR UNKNOWN INDICATION
  4. MEPROBAMATE [Interacting]
     Indication: DRUG USE FOR UNKNOWN INDICATION
  5. NORDIAZEPAM [Interacting]
     Indication: DRUG USE FOR UNKNOWN INDICATION

REACTIONS (5)
  - BRONCHOPNEUMONIA [None]
  - DEVICE FAILURE [None]
  - DRUG INTERACTION [None]
  - DRUG TOXICITY [None]
  - WRONG TECHNIQUE IN DRUG USAGE PROCESS [None]
